FAERS Safety Report 6474367-7 (Version None)
Quarter: 2009Q4

REPORT INFORMATION
  Report Type: 
  Country: None (occurrence: None)
  Receive Date: 20091204
  Receipt Date: 20091127
  Transmission Date: 20100525
  Serious: Yes (Hospitalization)
  Sender: FDA-Public Use
  Company Number: GB-PFIZER INC-2007080126

PATIENT
  Age: 67 Year
  Sex: Male

DRUGS (7)
  1. CHAMPIX [Suspect]
     Indication: SMOKING CESSATION THERAPY
     Dates: start: 20070628
  2. ADALAT [Concomitant]
     Dosage: 20 MG, 1X/DAY
     Route: 048
  3. ARTHROTEC [Concomitant]
  4. ACETYLSALICYLIC ACID [Concomitant]
     Dosage: 75 MG, 1X/DAY
     Route: 048
  5. CO-CODAMOL [Concomitant]
     Dosage: 2 DF, 8 TIMES A DAY
  6. OLMESARTAN MEDOXOMIL [Concomitant]
     Dosage: 20 MG, 1X/DAY
     Route: 048
  7. SIMVASTATIN [Concomitant]
     Dosage: 20 MG, 1X/DAY
     Route: 048

REACTIONS (4)
  - ASTHENIA [None]
  - INTERVERTEBRAL DISC COMPRESSION [None]
  - MUSCULAR WEAKNESS [None]
  - SENSORY LOSS [None]
